FAERS Safety Report 7365660-4 (Version None)
Quarter: 2011Q1

REPORT INFORMATION
  Report Type: 
  Country: None (occurrence: None)
  Receive Date: 20110322
  Receipt Date: 20101213
  Transmission Date: 20110831
  Serious: Yes (Other)
  Sender: FDA-Public Use
  Company Number: US-BAYER-2011-024661

PATIENT
  Sex: Female
  Weight: 63.492 kg

DRUGS (6)
  1. CELEXA [Concomitant]
     Dosage: 20 UNK, UNK
     Route: 048
  2. YAZ [Suspect]
     Indication: CONTRACEPTION
     Dosage: UNK
     Dates: start: 20070101, end: 20080101
  3. YASMIN [Suspect]
     Indication: CONTRACEPTION
     Dosage: UNK
     Dates: start: 20070101, end: 20080101
  4. YAZ [Suspect]
     Indication: DYSMENORRHOEA
  5. YASMIN [Suspect]
     Indication: DYSMENORRHOEA
  6. NEXIUM [Concomitant]
     Dosage: 40 MG, UNK
     Route: 048

REACTIONS (3)
  - PAIN [None]
  - CHOLELITHIASIS [None]
  - ABDOMINAL DISCOMFORT [None]
